FAERS Safety Report 26048589 (Version 2)
Quarter: 2025Q4

REPORT INFORMATION
  Report Type: Spontaneous
  Country: JP (occurrence: JP)
  Receive Date: 20251114
  Receipt Date: 20251119
  Transmission Date: 20260117
  Serious: Yes (Other)
  Sender: MERCK SHARP & DOHME LLC
  Company Number: JP-009507513-2313624

PATIENT
  Sex: Female

DRUGS (2)
  1. PEMBROLIZUMAB [Suspect]
     Active Substance: PEMBROLIZUMAB
     Dosage: STRENGTH: 100MG
     Route: 041
  2. LENVATINIB [Suspect]
     Active Substance: LENVATINIB
     Route: 048

REACTIONS (1)
  - Cardiomyopathy [Unknown]
